FAERS Safety Report 9291407 (Version 1)
Quarter: 2013Q2

REPORT INFORMATION
  Report Type: Spontaneous
  Country: US (occurrence: US)
  Receive Date: 20130515
  Receipt Date: 20130515
  Transmission Date: 20140414
  Serious: No
  Sender: FDA-Public Use
  Company Number: US-009507513-1305USA005757

PATIENT
  Age: 17 Year
  Sex: Female
  Weight: 75.74 kg

DRUGS (2)
  1. IMPLANON [Suspect]
     Indication: CONTRACEPTION
     Dosage: UNK
     Route: 059
     Dates: start: 20110720
  2. SEROQUEL [Concomitant]

REACTIONS (4)
  - Implant site pain [Unknown]
  - Implant site pruritus [Unknown]
  - Amenorrhoea [Unknown]
  - Device kink [Unknown]
